FAERS Safety Report 16667667 (Version 3)
Quarter: 2019Q4

REPORT INFORMATION
  Report Type: Spontaneous
  Country: CA (occurrence: CA)
  Receive Date: 20190805
  Receipt Date: 20191009
  Transmission Date: 20200122
  Serious: Yes (Other)
  Sender: FDA-Public Use
  Company Number: CA-PFIZER INC-2019330181

PATIENT
  Sex: Male
  Weight: 70 kg

DRUGS (7)
  1. DEXILANT [Concomitant]
     Active Substance: DEXLANSOPRAZOLE
     Indication: GASTROOESOPHAGEAL REFLUX DISEASE
     Dosage: 60 MG, DAILY
     Route: 048
     Dates: start: 20110510
  2. XALATAN [Suspect]
     Active Substance: LATANOPROST
     Indication: GLAUCOMA
     Dosage: UNK, ONCE DAILY (BEFORE BEDTIME)
     Route: 047
     Dates: start: 20170208
  3. XALATAN [Suspect]
     Active Substance: LATANOPROST
     Dosage: UNK, ONCE DAILY (BEFORE BEDTIME)
     Route: 047
     Dates: end: 2019
  4. ADVAIR HFA [Concomitant]
     Active Substance: FLUTICASONE PROPIONATE\SALMETEROL XINAFOATE
     Indication: CHRONIC OBSTRUCTIVE PULMONARY DISEASE
     Dosage: UNK
     Route: 055
     Dates: start: 20110616
  5. NORVASC [Concomitant]
     Active Substance: AMLODIPINE BESYLATE
     Indication: BLOOD PRESSURE MANAGEMENT
     Dosage: 5 MG, ONCE DAILY
     Route: 048
     Dates: start: 20190118
  6. SYNTHROID [Concomitant]
     Active Substance: LEVOTHYROXINE SODIUM
     Indication: HYPOTHYROIDISM
     Dosage: 0.05 MG, ONCE DAILY
     Route: 048
     Dates: start: 20150215
  7. CALCIUM [Concomitant]
     Active Substance: CALCIUM
     Indication: OSTEOPOROSIS
     Dosage: 500 MG, TWICE DAILY
     Route: 048
     Dates: start: 20170928

REACTIONS (6)
  - Foreign body sensation in eyes [Unknown]
  - Blindness [Recovered/Resolved]
  - Eye irritation [Unknown]
  - Eye pain [Recovered/Resolved]
  - Eye pruritus [Unknown]
  - Lacrimation increased [Unknown]

NARRATIVE: CASE EVENT DATE: 20190723
